FAERS Safety Report 5025857-5 (Version None)
Quarter: 2006Q2

REPORT INFORMATION
  Report Type: 
  Country: None (occurrence: None)
  Receive Date: 20060608
  Receipt Date: 19961007
  Transmission Date: 20061013
  Serious: Yes (Hospitalization)
  Sender: FDA-Public Use
  Company Number: 96-10-0394

PATIENT
  Sex: Female

DRUGS (4)
  1. ETHYOL [Suspect]
     Indication: ADVERSE DRUG REACTION
     Dosage: INTRAVENOUS
     Route: 042
     Dates: start: 19960913, end: 19960913
  2. ETHYOL [Suspect]
     Indication: ADVERSE DRUG REACTION
     Dosage: INTRAVENOUS
     Route: 042
     Dates: start: 19960923, end: 19960923
  3. ETHYOL [Suspect]
     Indication: ADVERSE DRUG REACTION
     Dosage: INTRAVENOUS
     Route: 042
     Dates: start: 19960913, end: 19961002
  4. ETHYOL [Suspect]
     Indication: ADVERSE DRUG REACTION
     Dosage: INTRAVENOUS
     Route: 042
     Dates: start: 19961002, end: 19961002

REACTIONS (2)
  - NEUTROPENIA [None]
  - PNEUMONIA [None]
